FAERS Safety Report 18199086 (Version 32)
Quarter: 2023Q4

REPORT INFORMATION
  Report Type: Report from Study
  Country: US (occurrence: US)
  Receive Date: 20200826
  Receipt Date: 20231109
  Transmission Date: 20240109
  Serious: Yes (Hospitalization, Other)
  Sender: FDA-Public Use
  Company Number: US-SHIRE-US202027679

PATIENT
  Age: 73 Year
  Sex: Female
  Weight: 87 kg

DRUGS (25)
  1. HUMAN IMMUNOGLOBULIN G [Suspect]
     Active Substance: HUMAN IMMUNOGLOBULIN G
     Indication: Immunodeficiency common variable
     Dosage: 42 GRAM, Q2WEEKS
     Route: 058
     Dates: start: 20180209
  2. HUMAN IMMUNOGLOBULIN G [Suspect]
     Active Substance: HUMAN IMMUNOGLOBULIN G
     Dosage: 42 GRAM, Q2WEEKS
     Route: 058
     Dates: start: 20180329
  3. HUMAN IMMUNOGLOBULIN G [Suspect]
     Active Substance: HUMAN IMMUNOGLOBULIN G
     Dosage: 40 GRAM, Q2WEEKS
     Route: 058
  4. DIPHENHYDRAMINE HYDROCHLORIDE [Concomitant]
     Active Substance: DIPHENHYDRAMINE HYDROCHLORIDE
     Dosage: UNK
  5. ASPIRIN [Concomitant]
     Active Substance: ASPIRIN
     Dosage: UNK
  6. EPINEPHRINE [Concomitant]
     Active Substance: EPINEPHRINE
     Dosage: UNK
     Route: 065
  7. PROTONIX [Concomitant]
     Active Substance: PANTOPRAZOLE SODIUM
     Dosage: UNK
  8. ACETAMINOPHEN [Concomitant]
     Active Substance: ACETAMINOPHEN
     Dosage: UNK
     Route: 065
  9. FLONASE ALLERGY RELIEF [Concomitant]
     Active Substance: FLUTICASONE PROPIONATE
     Dosage: UNK
  10. AZELASTINE HYDROCHLORIDE [Concomitant]
     Active Substance: AZELASTINE HYDROCHLORIDE
     Dosage: UNK
  11. METFORMIN HYDROCHLORIDE [Concomitant]
     Active Substance: METFORMIN HYDROCHLORIDE
     Dosage: UNK
  12. ALLEGRA-D [Concomitant]
     Active Substance: FEXOFENADINE HYDROCHLORIDE\PSEUDOEPHEDRINE HYDROCHLORIDE
     Dosage: UNK
     Route: 065
  13. LOSARTAN POTASSIUM [Concomitant]
     Active Substance: LOSARTAN POTASSIUM
     Dosage: UNK
     Route: 065
  14. OZEMPIC [Concomitant]
     Active Substance: SEMAGLUTIDE
     Dosage: UNK
  15. MAGNESIUM [Concomitant]
     Active Substance: MAGNESIUM
     Dosage: UNK
  16. PLAVIX [Concomitant]
     Active Substance: CLOPIDOGREL BISULFATE
     Dosage: UNK
  17. POTASSIUM CHLORIDE [Concomitant]
     Active Substance: POTASSIUM CHLORIDE
     Dosage: UNK
  18. LIDOCAINE [Concomitant]
     Active Substance: LIDOCAINE
     Dosage: UNK
     Route: 065
  19. QNASL [Concomitant]
     Active Substance: BECLOMETHASONE DIPROPIONATE
     Dosage: UNK
     Route: 065
  20. VITAMIN B COMPLEX [Concomitant]
     Active Substance: CYANOCOBALAMIN\DEXPANTHENOL\NIACINAMIDE\PYRIDOXINE HYDROCHLORIDE\RIBOFLAVIN 5^-PHOSPHATE SODIUM\THIA
     Dosage: UNK
  21. CHLORTHALIDONE [Concomitant]
     Active Substance: CHLORTHALIDONE
     Dosage: UNK
     Route: 065
  22. CLARITHROMYCIN [Concomitant]
     Active Substance: CLARITHROMYCIN
     Dosage: UNK
     Route: 065
  23. CALCIUM [Concomitant]
     Active Substance: CALCIUM
     Dosage: UNK
     Route: 065
  24. VIIBRYD [Concomitant]
     Active Substance: VILAZODONE HYDROCHLORIDE
     Dosage: UNK
     Route: 065
  25. ELIQUIS [Concomitant]
     Active Substance: APIXABAN
     Dosage: UNK
     Route: 065

REACTIONS (35)
  - Abdominal adhesions [Unknown]
  - Food poisoning [Unknown]
  - Limb injury [Unknown]
  - Gastrointestinal disorder [Unknown]
  - Cardiac flutter [Unknown]
  - Infusion related reaction [Unknown]
  - Sinusitis [Recovered/Resolved]
  - Ear pruritus [Unknown]
  - Injection site exfoliation [Unknown]
  - Drug eruption [Unknown]
  - Dermatitis contact [Unknown]
  - Administration site pruritus [Unknown]
  - COVID-19 [Recovered/Resolved]
  - Allergic sinusitis [Unknown]
  - Illness [Unknown]
  - Cardiac disorder [Unknown]
  - Multiple allergies [Unknown]
  - Pharyngitis [Unknown]
  - Infection [Unknown]
  - Asthenia [Unknown]
  - Oropharyngeal pain [Unknown]
  - Hypersensitivity [Unknown]
  - Infusion site discharge [Unknown]
  - Rash [Unknown]
  - Injection site pain [Unknown]
  - Infusion site bruising [Unknown]
  - Infusion site swelling [Unknown]
  - Infusion site pruritus [Unknown]
  - Pyrexia [Unknown]
  - Abdominal pain [Unknown]
  - Headache [Unknown]
  - Pruritus [Recovering/Resolving]
  - Rhinorrhoea [Unknown]
  - Incorrect product administration duration [Unknown]
  - Inappropriate schedule of product administration [Unknown]

NARRATIVE: CASE EVENT DATE: 20201022
